FAERS Safety Report 6115522-5 (Version None)
Quarter: 2009Q1

REPORT INFORMATION
  Report Type: 
  Country: None (occurrence: None)
  Receive Date: 20090313
  Receipt Date: 20090302
  Transmission Date: 20090719
  Serious: Yes (Other)
  Sender: FDA-Public Use
  Company Number: US-ROCHE-618529

PATIENT

DRUGS (3)
  1. TRETINOIN [Suspect]
     Dosage: TWO DIVIDED DAILY DOSES
     Route: 065
  2. ARSENIC TRIOXIDE [Suspect]
     Dosage: 10 DAYS AFTER ATRA
     Route: 042
  3. GEMTUZUMAB OZOGAMICIN [Suspect]
     Dosage: ON DAY 1
     Route: 065

REACTIONS (2)
  - HAEMORRHAGE INTRACRANIAL [None]
  - LEUKOCYTOSIS [None]
